FAERS Safety Report 12659965 (Version 1)
Quarter: 2016Q3

REPORT INFORMATION
  Report Type: Spontaneous
  Country: US (occurrence: US)
  Receive Date: 20160817
  Receipt Date: 20160817
  Transmission Date: 20161109
  Serious: No
  Sender: FDA-Public Use
  Company Number: GXBR2016US001076

PATIENT
  Sex: Female

DRUGS (2)
  1. PHENDIMETRAZINE TARTRATE TABLETS USP [Suspect]
     Active Substance: PHENDIMETRAZINE TARTRATE
     Indication: WEIGHT CONTROL
     Dosage: 35 MG, 1-2 TABLETS TID
     Route: 048
     Dates: start: 201504
  2. ESZOPICLONE. [Concomitant]
     Active Substance: ESZOPICLONE
     Indication: INSOMNIA
     Dosage: UNK DF, UNK

REACTIONS (1)
  - Off label use [Not Recovered/Not Resolved]
